FAERS Safety Report 5807954-7 (Version None)
Quarter: 2008Q3

REPORT INFORMATION
  Report Type: 
  Country: None (occurrence: None)
  Receive Date: 20080711
  Receipt Date: 20080630
  Transmission Date: 20090109
  Serious: Yes (Congenital Anomaly)
  Sender: FDA-Public Use
  Company Number: FR-PFIZER INC-2008055204

PATIENT

DRUGS (5)
  1. ALDACTONE [Suspect]
     Route: 048
  2. ZOLOFT [Suspect]
     Route: 048
  3. LYSANXIA [Suspect]
     Route: 048
  4. MOPRAL [Suspect]
     Route: 048
  5. RANIPLEX [Suspect]
     Route: 048

REACTIONS (3)
  - ABORTION INDUCED [None]
  - DRUG EXPOSURE DURING PREGNANCY [None]
  - LIMB MALFORMATION [None]
